FAERS Safety Report 10715668 (Version 1)
Quarter: 2015Q1

REPORT INFORMATION
  Report Type: Spontaneous
  Country: US (occurrence: None)
  Receive Date: 20150108
  Receipt Date: 20150108
  Transmission Date: 20150721
  Serious: Yes (Other)
  Sender: FDA-Public Use
  Company Number: 425686

PATIENT
  Age: 14 Year
  Sex: Male
  Weight: 66.7 kg

DRUGS (1)
  1. LEVEMIR [Suspect]
     Active Substance: INSULIN DETEMIR
     Indication: TYPE 1 DIABETES MELLITUS
     Route: 058
     Dates: start: 20141006, end: 20141007

REACTIONS (1)
  - Rash generalised [None]

NARRATIVE: CASE EVENT DATE: 20141007
